FAERS Safety Report 20030796 (Version 1)
Quarter: 2021Q4

REPORT INFORMATION
  Report Type: Spontaneous
  Country: US (occurrence: US)
  Receive Date: 20211103
  Receipt Date: 20211103
  Transmission Date: 20220303
  Serious: No
  Sender: FDA-Public Use
  Company Number: US-BAYER-2021A238433

PATIENT

DRUGS (2)
  1. CIPRO [Suspect]
     Active Substance: CIPROFLOXACIN HYDROCHLORIDE
     Dosage: UNK
     Route: 048
     Dates: start: 20210412
  2. LEVAQUIN [Suspect]
     Active Substance: LEVOFLOXACIN

REACTIONS (3)
  - Drug hypersensitivity [None]
  - Arthralgia [None]
  - Muscular weakness [None]
